FAERS Safety Report 6004472-0 (Version None)
Quarter: 2008Q4

REPORT INFORMATION
  Report Type: 
  Country: None (occurrence: None)
  Receive Date: 20081216
  Receipt Date: 20081211
  Transmission Date: 20090506
  Serious: Yes (Hospitalization)
  Sender: FDA-Public Use
  Company Number: US-KINGPHARMUSA00001-K200801173

PATIENT
  Age: 65 Year
  Sex: Female

DRUGS (3)
  1. ALTACE [Suspect]
     Indication: HYPERTENSION
     Dosage: 5 MG, QD
     Route: 048
     Dates: start: 20080708, end: 20080829
  2. PLENDIL [Suspect]
     Indication: HYPERTENSION
     Dates: start: 20080708, end: 20080711
  3. VISCOTEARS [Concomitant]
     Route: 047

REACTIONS (32)
  - ABDOMINAL PAIN [None]
  - ACTIVITIES OF DAILY LIVING IMPAIRED [None]
  - ANOREXIA [None]
  - ARTHRALGIA [None]
  - ASTHENIA [None]
  - BALANCE DISORDER [None]
  - BURNING SENSATION [None]
  - DIZZINESS [None]
  - DRY EYE [None]
  - DRY SKIN [None]
  - DYSPHONIA [None]
  - DYSPNOEA [None]
  - EPILEPSY [None]
  - HEADACHE [None]
  - HEARING IMPAIRED [None]
  - LIP SWELLING [None]
  - MUSCLE SPASMS [None]
  - MUSCULAR WEAKNESS [None]
  - MYALGIA [None]
  - NAUSEA [None]
  - PAIN [None]
  - PARAESTHESIA [None]
  - PRURITUS [None]
  - RASH VESICULAR [None]
  - SLEEP DISORDER [None]
  - SWELLING FACE [None]
  - TEMPERATURE INTOLERANCE [None]
  - THROAT IRRITATION [None]
  - TREMOR [None]
  - VAGINAL DISORDER [None]
  - VAGINAL LESION [None]
  - WEIGHT DECREASED [None]
